FAERS Safety Report 17015783 (Version 2)
Quarter: 2019Q4

REPORT INFORMATION
  Report Type: Spontaneous
  Country: CA (occurrence: CA)
  Receive Date: 20191111
  Receipt Date: 20191202
  Transmission Date: 20200122
  Serious: Yes (Hospitalization, Other)
  Sender: FDA-Public Use
  Company Number: CA-GILEAD-2019-0436869

PATIENT
  Age: 76 Year
  Sex: Female

DRUGS (2)
  1. UPTRAVI [Concomitant]
     Active Substance: SELEXIPAG
     Indication: PRODUCT USED FOR UNKNOWN INDICATION
     Dosage: UNK
  2. AMBRISENTAN [Suspect]
     Active Substance: AMBRISENTAN
     Indication: PULMONARY ARTERIAL HYPERTENSION
     Dosage: 5 MG, UNK
     Route: 065
     Dates: start: 20191008

REACTIONS (5)
  - Irritable bowel syndrome [Unknown]
  - Secretion discharge [Unknown]
  - Pulmonary hypertension [Unknown]
  - Fatigue [Unknown]
  - Headache [Unknown]
